FAERS Safety Report 9474819 (Version 1)
Quarter: 2013Q3

REPORT INFORMATION
  Report Type: Spontaneous
  Country: GB (occurrence: GB)
  Receive Date: 20130823
  Receipt Date: 20130823
  Transmission Date: 20140515
  Serious: Yes (Disabling)
  Sender: FDA-Public Use
  Company Number: PHHY2013GB088522

PATIENT
  Age: 18 Year
  Sex: Female
  Weight: 48.7 kg

DRUGS (5)
  1. TRAMADOL [Suspect]
     Route: 048
     Dates: start: 20130204
  2. BENZOYL PEROXIDE [Concomitant]
     Dates: start: 20120913, end: 20121108
  3. DIFFLAM [Concomitant]
     Dates: start: 20121122, end: 20121127
  4. DICLOFENAC SODIUM [Concomitant]
     Dates: start: 20130111
  5. TRIMETHOPRIM [Concomitant]
     Dates: start: 20130111, end: 20130118

REACTIONS (2)
  - Dyspnoea [Unknown]
  - Pain [Unknown]
